FAERS Safety Report 9633286 (Version 1)
Quarter: 2013Q4

REPORT INFORMATION
  Report Type: Report from Study
  Country: US (occurrence: US)
  Receive Date: 20131021
  Receipt Date: 20131021
  Transmission Date: 20140711
  Serious: Yes (Hospitalization)
  Sender: FDA-Public Use
  Company Number: US-BAYER-2013-124287

PATIENT
  Age: 66 Year
  Sex: Male

DRUGS (1)
  1. NEXAVAR [Suspect]
     Indication: COLON CANCER
     Dosage: 400 MG, BID
     Route: 048
     Dates: start: 20130913, end: 20131007

REACTIONS (4)
  - Intestinal perforation [None]
  - Peritonitis [None]
  - Drug interaction [None]
  - Off label use [None]
